FAERS Safety Report 7538419-2 (Version None)
Quarter: 2011Q2

REPORT INFORMATION
  Report Type: 
  Country: None (occurrence: None)
  Receive Date: 20110609
  Receipt Date: 20110527
  Transmission Date: 20111010
  Serious: Yes (Other)
  Sender: FDA-Public Use
  Company Number: PHHY2011US46000

PATIENT
  Sex: Female

DRUGS (8)
  1. METHYLPREDNISOLONE [Suspect]
     Indication: RENAL TRANSPLANT
     Dosage: 4 MG, DAILY
  2. PROGRAF [Concomitant]
  3. ASPIRIN [Concomitant]
  4. MULTI-VITAMINS [Concomitant]
  5. LABETALOL HCL [Concomitant]
  6. MYFORTIC [Suspect]
     Indication: RENAL TRANSPLANT
     Dosage: 180 MG, BID
  7. CELLCEPT [Suspect]
     Indication: RENAL TRANSPLANT
  8. NIFEDIPINE [Concomitant]

REACTIONS (8)
  - MOUTH HAEMORRHAGE [None]
  - URINARY TRACT INFECTION [None]
  - ASTHENIA [None]
  - MOOD SWINGS [None]
  - WEIGHT INCREASED [None]
  - POOR VENOUS ACCESS [None]
  - FATIGUE [None]
  - FEELING ABNORMAL [None]
